FAERS Safety Report 12141228 (Version 2)
Quarter: 2016Q4

REPORT INFORMATION
  Report Type: Spontaneous
  Country: CA (occurrence: CA)
  Receive Date: 20160303
  Receipt Date: 20161102
  Transmission Date: 20170207
  Serious: Yes (Other)
  Sender: FDA-Public Use
  Company Number: CA-PFIZER INC-2016128461

PATIENT
  Age: 33 Year
  Sex: Female
  Weight: 73 kg

DRUGS (14)
  1. IMURAN [Suspect]
     Active Substance: AZATHIOPRINE
     Dosage: UNK
  2. TECTA [Suspect]
     Active Substance: PANTOPRAZOLE MAGNESIUM
     Dosage: UNK
  3. CENTRUM MATERNA [Suspect]
     Active Substance: MINERALS\VITAMINS
     Dosage: UNK
  4. REMICADE [Suspect]
     Active Substance: INFLIXIMAB
     Indication: CROHN^S DISEASE
     Dosage: 700 MG, Q4WEEKS
     Route: 042
  5. FRAGMIN [Suspect]
     Active Substance: DALTEPARIN SODIUM
     Dosage: UNK
     Route: 042
  6. SALOFALK /00000301/ [Suspect]
     Active Substance: MESALAMINE
     Dosage: UNK
  7. VITAMIN D /00107901/ [Concomitant]
     Active Substance: ERGOCALCIFEROL
     Dosage: UNK
  8. PANTOPRAZOLE [Suspect]
     Active Substance: PANTOPRAZOLE SODIUM
     Dosage: UNK
  9. BUSCOPAN [Suspect]
     Active Substance: BUTYLSCOPOLAMINE BROMIDE
     Indication: ABDOMINAL PAIN UPPER
     Dosage: UNK
  10. CALCIUM [Concomitant]
     Active Substance: CALCIUM
     Dosage: UNK
  11. IRON [Concomitant]
     Active Substance: IRON
     Dosage: UNK
  12. ASACOL [Suspect]
     Active Substance: MESALAMINE
     Dosage: UNK
  13. CORTIFOAM [Suspect]
     Active Substance: HYDROCORTISONE ACETATE
     Dosage: UNK
  14. REMICADE [Suspect]
     Active Substance: INFLIXIMAB
     Indication: COLITIS ULCERATIVE
     Dosage: 400 MG, Q4WEEKS
     Route: 042

REACTIONS (9)
  - Skin warm [Unknown]
  - Arthropod bite [Unknown]
  - Joint swelling [Unknown]
  - Swelling [Unknown]
  - Rash [Unknown]
  - Abdominal pain upper [Unknown]
  - Subcutaneous abscess [Unknown]
  - Pain [Unknown]
  - Purulent discharge [Unknown]
